FAERS Safety Report 21743445 (Version 11)
Quarter: 2023Q2

REPORT INFORMATION
  Report Type: Spontaneous
  Country: FI (occurrence: FI)
  Receive Date: 20221217
  Receipt Date: 20230622
  Transmission Date: 20230722
  Serious: Yes (Life-Threatening, Hospitalization, Disabling, Other)
  Sender: FDA-Public Use
  Company Number: FI-Accord-291536

PATIENT
  Age: 76 Year
  Sex: Female
  Weight: 65.5 kg

DRUGS (40)
  1. GEMCITABINE [Suspect]
     Active Substance: GEMCITABINE
     Indication: Diffuse large B-cell lymphoma stage IV
     Dosage: 1Q2W
     Route: 042
     Dates: start: 20221125, end: 20221125
  2. OXALIPLATIN [Suspect]
     Active Substance: OXALIPLATIN
     Indication: Diffuse large B-cell lymphoma stage IV
     Dosage: 1Q2W
     Route: 042
     Dates: start: 20221125, end: 20221125
  3. EPCORITAMAB [Suspect]
     Active Substance: EPCORITAMAB
     Indication: Diffuse large B-cell lymphoma stage IV
     Dosage: PRIMING DOSE: 0.16 MILLIGRAM, SINGLE
     Route: 058
     Dates: start: 20221125, end: 20221125
  4. CETIRIZINE HYDROCHLORIDE [Concomitant]
     Active Substance: CETIRIZINE HYDROCHLORIDE
     Indication: Premedication
     Dosage: 10 MG
     Route: 048
     Dates: start: 20221125, end: 20221125
  5. PANADOL [Concomitant]
     Active Substance: ACETAMINOPHEN
     Indication: Premedication
     Dosage: 1 G
     Route: 048
     Dates: start: 20221125, end: 20221125
  6. DEXAMETHASONE [Concomitant]
     Active Substance: DEXAMETHASONE
     Indication: Prophylaxis
     Route: 048
     Dates: start: 20221125, end: 20221127
  7. PREDNISOLONE [Concomitant]
     Active Substance: PREDNISOLONE
     Indication: Prophylaxis
     Route: 048
     Dates: start: 20221128, end: 20221128
  8. BISOPROLOL [Concomitant]
     Active Substance: BISOPROLOL
     Dates: start: 20221201
  9. COTRIM [Concomitant]
     Active Substance: SULFAMETHOXAZOLE\TRIMETHOPRIM
     Dates: start: 20220407
  10. DYNASTAT [Concomitant]
     Active Substance: PARECOXIB SODIUM
     Dates: start: 20221201
  11. RACECADOTRIL [Concomitant]
     Active Substance: RACECADOTRIL
     Dates: start: 20221204
  12. INNOHEP [Concomitant]
     Active Substance: TINZAPARIN SODIUM
     Dates: start: 20221201, end: 20221201
  13. LOPEX [Concomitant]
     Dates: start: 20221204
  14. PARAMAX [Concomitant]
     Dates: start: 20221123
  15. PRIMPERAN [Concomitant]
     Active Substance: METOCLOPRAMIDE HYDROCHLORIDE
     Dates: start: 20220407
  16. PANTOPRAZOLE SODIUM [Concomitant]
     Active Substance: PANTOPRAZOLE SODIUM
     Dates: start: 20221102
  17. ZOFRAN [Concomitant]
     Active Substance: ONDANSETRON HYDROCHLORIDE
     Dates: start: 20221125
  18. VALACYCLOVIR HYDROCHLORIDE [Concomitant]
     Active Substance: VALACYCLOVIR HYDROCHLORIDE
     Dates: start: 20220607
  19. GLYCOPHOS [Concomitant]
     Active Substance: SODIUM GLYCEROPHOSPHATE ANHYDROUS
     Dates: start: 20221204, end: 20221205
  20. POTASSIUM [Concomitant]
     Active Substance: POTASSIUM
     Dosage: 40 MG
     Dates: start: 20221205, end: 20221205
  21. ELECTROLYTES NOS [Concomitant]
     Active Substance: ELECTROLYTES NOS
     Dates: start: 20221130, end: 20221203
  22. RINGERSTERIL [Concomitant]
     Dates: start: 20221203, end: 20221203
  23. NYSTATIN [Concomitant]
     Active Substance: NYSTATIN
     Dates: start: 20221201
  24. CETIRIZINE HYDROCHLORIDE [Concomitant]
     Active Substance: CETIRIZINE HYDROCHLORIDE
     Dates: start: 20221123
  25. ACETAMINOPHEN [Concomitant]
     Active Substance: ACETAMINOPHEN
     Dosage: 1000 MG
     Route: 048
     Dates: start: 20221212, end: 20221212
  26. PANADOL [Concomitant]
     Active Substance: ACETAMINOPHEN
     Dosage: 1000 MG
     Route: 048
     Dates: start: 20221212, end: 20221212
  27. EPCORITAMAB [Suspect]
     Active Substance: EPCORITAMAB
     Indication: Diffuse large B-cell lymphoma stage IV
     Dosage: RE PRIMING DOSE: 0.16 MILLIGRAM, SINGLE
     Route: 058
     Dates: start: 20221212, end: 20221212
  28. GEMCITABINE [Suspect]
     Active Substance: GEMCITABINE
     Indication: Diffuse large B-cell lymphoma stage IV
     Dosage: 1Q2W
     Route: 042
     Dates: start: 20221227, end: 20221227
  29. OXALIPLATIN [Suspect]
     Active Substance: OXALIPLATIN
     Indication: Diffuse large B-cell lymphoma stage IV
     Dosage: 1Q2W
     Route: 042
     Dates: start: 20221227, end: 20221227
  30. GEMCITABINE [Suspect]
     Active Substance: GEMCITABINE
     Indication: Diffuse large B-cell lymphoma stage IV
     Dosage: 1Q2W
     Route: 042
     Dates: start: 20230118, end: 20230118
  31. OXALIPLATIN [Suspect]
     Active Substance: OXALIPLATIN
     Indication: Diffuse large B-cell lymphoma stage IV
     Dosage: 1Q2W
     Route: 042
     Dates: start: 20230118, end: 20230118
  32. OXALIPLATIN [Suspect]
     Active Substance: OXALIPLATIN
     Indication: Diffuse large B-cell lymphoma stage IV
     Dosage: 1Q2W
     Route: 042
     Dates: start: 20230208
  33. DEXAMETHASONE [Concomitant]
     Active Substance: DEXAMETHASONE
     Indication: Prophylaxis
     Route: 048
     Dates: start: 20221212, end: 20221214
  34. EPCORITAMAB [Suspect]
     Active Substance: EPCORITAMAB
     Indication: Diffuse large B-cell lymphoma stage IV
     Dosage: INTERMEDIATE (RPD8) DOSE: 0.8 MILLIGRAM, SINGLE
     Route: 058
     Dates: start: 20221219, end: 20221219
  35. EPCORITAMAB [Suspect]
     Active Substance: EPCORITAMAB
     Indication: Diffuse large B-cell lymphoma stage IV
     Dosage: FULL DOSE: 48 MILLIGRAM, SINGLE
     Route: 058
     Dates: start: 20221227, end: 20221227
  36. EPCORITAMAB [Suspect]
     Active Substance: EPCORITAMAB
     Indication: Diffuse large B-cell lymphoma stage IV
     Dosage: FULL DOSE: 48 MG, SINGLE
     Route: 058
     Dates: start: 20230111, end: 20230118
  37. EPCORITAMAB [Suspect]
     Active Substance: EPCORITAMAB
     Indication: Diffuse large B-cell lymphoma stage IV
     Dosage: FULL DOSE: 48 MG, SINGLE
     Route: 058
     Dates: start: 20230201
  38. GEMCITABINE [Suspect]
     Active Substance: GEMCITABINE
     Indication: Diffuse large B-cell lymphoma stage IV
     Dosage: 1Q2W
     Route: 042
     Dates: start: 20230208
  39. CETIRIZINE HYDROCHLORIDE [Concomitant]
     Active Substance: CETIRIZINE HYDROCHLORIDE
     Indication: Premedication
     Dosage: 10 MG
     Route: 048
     Dates: start: 20221212, end: 20221212
  40. PREDNISOLONE [Concomitant]
     Active Substance: PREDNISOLONE
     Indication: Prophylaxis
     Route: 048
     Dates: start: 20221215, end: 20221215

REACTIONS (10)
  - White blood cell count decreased [Recovered/Resolved]
  - C-reactive protein increased [Recovered/Resolved]
  - Hypokalaemia [Recovered/Resolved]
  - Atrial fibrillation [Recovered/Resolved]
  - Diarrhoea [Recovered/Resolved]
  - Neutropenia [Recovered/Resolved]
  - Nausea [Unknown]
  - Decreased appetite [Recovered/Resolved]
  - Feeding disorder [Recovering/Resolving]
  - Oral candidiasis [Unknown]

NARRATIVE: CASE EVENT DATE: 20221128
